FAERS Safety Report 8294491-6 (Version None)
Quarter: 2012Q2

REPORT INFORMATION
  Report Type: 
  Country: None (occurrence: None)
  Receive Date: 20120418
  Receipt Date: 20120409
  Transmission Date: 20120825
  Serious: Yes (Other)
  Sender: FDA-Public Use
  Company Number: US-SANOFI-AVENTIS-2012SA024839

PATIENT
  Sex: Male

DRUGS (4)
  1. SOLOSTAR [Suspect]
  2. APIDRA [Suspect]
     Route: 058
  3. SOLOSTAR [Suspect]
  4. LANTUS [Suspect]
     Route: 058

REACTIONS (1)
  - CORONARY ARTERY DISEASE [None]
